FAERS Safety Report 21465897 (Version 1)
Quarter: 2022Q4

REPORT INFORMATION
  Report Type: Spontaneous
  Country: US (occurrence: None)
  Receive Date: 20221014
  Receipt Date: 20221014
  Transmission Date: 20230113
  Serious: Yes (Hospitalization)
  Sender: FDA-Public Use
  Company Number: None

PATIENT
  Sex: Male

DRUGS (1)
  1. EVEROLIMUS [Suspect]
     Active Substance: EVEROLIMUS
     Indication: Liver transplant
     Dosage: 1MG TWICE DAILY BY MOUTH?
     Route: 048
     Dates: start: 20220809

REACTIONS (3)
  - Nausea [None]
  - Vomiting [None]
  - Viral infection [None]
